FAERS Safety Report 7482470-8 (Version None)
Quarter: 2011Q2

REPORT INFORMATION
  Report Type: 
  Country: None (occurrence: None)
  Receive Date: 20110516
  Receipt Date: 20110506
  Transmission Date: 20111010
  Serious: Yes (Other)
  Sender: FDA-Public Use
  Company Number: US-ASTRAZENECA-2011SE27209

PATIENT
  Sex: Male
  Weight: 86.2 kg

DRUGS (7)
  1. NEXIUM [Concomitant]
     Route: 048
  2. PRILOSEC [Concomitant]
     Route: 048
  3. CARDURA [Concomitant]
  4. SEROQUEL [Suspect]
     Route: 048
  5. CRESTOR [Concomitant]
  6. FLUOXETINE [Concomitant]
  7. ZYRTEC [Concomitant]

REACTIONS (1)
  - PROSTATE CANCER [None]
